FAERS Safety Report 7734268-0 (Version None)
Quarter: 2011Q3

REPORT INFORMATION
  Report Type: 
  Country: None (occurrence: None)
  Receive Date: 20110901
  Receipt Date: 20110823
  Transmission Date: 20111222
  Serious: Yes (Hospitalization)
  Sender: FDA-Public Use
  Company Number: 2011ST000218

PATIENT
  Age: 10 Year
  Sex: Female
  Weight: 33.8 kg

DRUGS (13)
  1. PROMETHAZINE [Concomitant]
  2. VELCADE [Suspect]
     Indication: ACUTE LYMPHOCYTIC LEUKAEMIA
     Dosage: 1.3 MG/M2;X1;IV
     Route: 042
     Dates: start: 20110803, end: 20110803
  3. METHOTREXATE [Suspect]
     Indication: ACUTE LYMPHOCYTIC LEUKAEMIA
     Dosage: INTH
     Route: 037
  4. LORAZEPAM [Concomitant]
  5. DIPHENHYDRAMINE HCL [Concomitant]
  6. VINCRISTINE [Suspect]
     Indication: ACUTE LYMPHOCYTIC LEUKAEMIA
     Dosage: 1.5 MG/M**2;X1;IV
     Route: 042
     Dates: start: 20110803, end: 20110803
  7. HYDROCORTISONE [Suspect]
     Indication: ACUTE LYMPHOCYTIC LEUKAEMIA
  8. ALLOPURINOL [Concomitant]
  9. RANITIDINE [Concomitant]
  10. CYTARABINE [Suspect]
     Indication: ACUTE LYMPHOCYTIC LEUKAEMIA
     Dosage: 70 MG;X1;INTH
     Route: 037
     Dates: start: 20110803, end: 20110803
  11. ONCASPAR [Suspect]
     Indication: ACUTE LYMPHOCYTIC LEUKAEMIA
     Dosage: 2500 IU/M2;QD;IV
     Route: 042
     Dates: start: 20110804, end: 20110805
  12. DOXORUBICIN HCL [Suspect]
     Indication: ACUTE LYMPHOCYTIC LEUKAEMIA
     Dosage: 60 MG/M**2;X1;IV
     Route: 042
     Dates: start: 20110803, end: 20110803
  13. PREDNISONE [Suspect]
     Indication: ACUTE LYMPHOCYTIC LEUKAEMIA
     Dosage: 20 MG; PO
     Route: 048
     Dates: start: 20110803, end: 20110805

REACTIONS (2)
  - LARYNGOSPASM [None]
  - THROAT IRRITATION [None]
